FAERS Safety Report 14017961 (Version 3)
Quarter: 2017Q4

REPORT INFORMATION
  Report Type: Report from Study
  Country: SE (occurrence: SE)
  Receive Date: 20170928
  Receipt Date: 20171012
  Transmission Date: 20180321
  Serious: Yes (Hospitalization, Other)
  Sender: FDA-Public Use
  Company Number: SE-ROCHE-1998281

PATIENT
  Age: 42 Year
  Sex: Female
  Weight: 54.4 kg

DRUGS (22)
  1. PARACETAMOL [Concomitant]
     Active Substance: ACETAMINOPHEN
     Route: 048
     Dates: start: 20170927, end: 20170927
  2. ALLOPURINOL. [Concomitant]
     Active Substance: ALLOPURINOL
     Route: 048
     Dates: start: 20170816
  3. MOMETASONE FUROATE. [Concomitant]
     Active Substance: MOMETASONE FUROATE
     Route: 065
     Dates: start: 20150914
  4. CEFTAZIDIME. [Concomitant]
     Active Substance: CEFTAZIDIME
     Route: 042
     Dates: start: 20170924, end: 20170924
  5. HYDROCORTISONE. [Concomitant]
     Active Substance: HYDROCORTISONE
     Route: 042
     Dates: start: 20170920, end: 20170920
  6. RASBURICASE [Concomitant]
     Active Substance: RASBURICASE
     Route: 042
     Dates: start: 20170920, end: 20170920
  7. OXYGEN. [Concomitant]
     Active Substance: OXYGEN
     Route: 050
     Dates: start: 20170920, end: 20170920
  8. OBINUTUZUMAB. [Suspect]
     Active Substance: OBINUTUZUMAB
     Indication: CHRONIC LYMPHOCYTIC LEUKAEMIA
     Dosage: INITIAL DOSE PER PROTOCOL: CYCLE 1: 100 MG, D1; 900 MG, D1(2); 1000 MG, D8+15, Q28D?CYCLES 2-6: 1000
     Route: 065
     Dates: start: 20170920
  9. PARACETAMOL [Concomitant]
     Active Substance: ACETAMINOPHEN
     Route: 042
     Dates: start: 20170920, end: 20170920
  10. ALBUNORM [Concomitant]
     Active Substance: ALBUMIN HUMAN
     Route: 042
     Dates: start: 20170924, end: 20170924
  11. OMEPRAZOLE. [Concomitant]
     Active Substance: OMEPRAZOLE
     Route: 048
     Dates: start: 20170919
  12. SODIUM CHLORIDE. [Concomitant]
     Active Substance: SODIUM CHLORIDE
     Route: 042
     Dates: start: 20170920, end: 20170920
  13. CLAVULANSAURE [Concomitant]
     Route: 048
     Dates: start: 20170924
  14. SULFAMETHOXAZOLE [Concomitant]
     Active Substance: SULFAMETHOXAZOLE
     Route: 048
     Dates: start: 20170920
  15. KLEMASTIN [Concomitant]
     Indication: PREMEDICATION
     Route: 042
  16. LEVONORGESTREL. [Concomitant]
     Active Substance: LEVONORGESTREL
     Route: 065
     Dates: start: 20100824
  17. PETIDIN [Concomitant]
     Route: 042
     Dates: start: 20170920, end: 20170920
  18. METHYLPREDNISOLONE. [Concomitant]
     Active Substance: METHYLPREDNISOLONE
     Indication: PREMEDICATION
  19. AMOXICILLIN. [Concomitant]
     Active Substance: AMOXICILLIN
     Route: 048
     Dates: start: 20170929
  20. METOCLOPRAMID [Concomitant]
     Active Substance: METOCLOPRAMIDE
     Route: 042
     Dates: start: 20170920, end: 20170920
  21. AMOXICILLIN. [Concomitant]
     Active Substance: AMOXICILLIN
     Route: 048
     Dates: start: 20170924
  22. TRIMETHOPRIM. [Concomitant]
     Active Substance: TRIMETHOPRIM
     Route: 048
     Dates: start: 20170920

REACTIONS (3)
  - Infection [Recovering/Resolving]
  - Tooth infection [Recovered/Resolved]
  - Cytokine release syndrome [Recovered/Resolved]

NARRATIVE: CASE EVENT DATE: 20170920
